FAERS Safety Report 11329654 (Version 1)
Quarter: 2015Q3

REPORT INFORMATION
  Report Type: Spontaneous
  Country: US (occurrence: None)
  Receive Date: 20150730
  Receipt Date: 20150730
  Transmission Date: 20151125
  Serious: Yes (Hospitalization)
  Sender: FDA-Public Use
  Company Number: CC400264888

PATIENT
  Age: 77 Year
  Sex: Female

DRUGS (11)
  1. FENTANYL. [Concomitant]
     Active Substance: FENTANYL
  2. HYDROMORPONE [Concomitant]
  3. GLYCOPYRROLATE. [Concomitant]
     Active Substance: GLYCOPYRROLATE
  4. PROPOFOL. [Concomitant]
     Active Substance: PROPOFOL
  5. ONDANSETRON [Concomitant]
     Active Substance: ONDANSETRON
  6. ROCURONIUM [Concomitant]
     Active Substance: ROCURONIUM BROMIDE
  7. LIDOCAINE. [Suspect]
     Active Substance: LIDOCAINE
     Indication: ANAESTHESIA
     Route: 042
  8. ISOFLURANE. [Concomitant]
     Active Substance: ISOFLURANE
  9. CEFAZOLIN [Concomitant]
     Active Substance: CEFAZOLIN
  10. NEOSTIGMINE [Concomitant]
     Active Substance: NEOSTIGMINE
  11. LIDOCAINE. [Suspect]
     Active Substance: LIDOCAINE
     Indication: SHUNT MALFUNCTION
     Route: 042

REACTIONS (8)
  - Dystonia [None]
  - Apnoea [None]
  - Hypopnoea [None]
  - Confusional state [None]
  - Muscle spasticity [None]
  - Shunt malfunction [None]
  - Blood pressure increased [None]
  - Posturing [None]
